FAERS Safety Report 23457564 (Version 1)
Quarter: 2024Q1

REPORT INFORMATION
  Report Type: Spontaneous
  Country: US (occurrence: US)
  Receive Date: 20240130
  Receipt Date: 20240130
  Transmission Date: 20240410
  Serious: No
  Sender: FDA-Public Use
  Company Number: US-AMERICAN REGENT INC-2023000966

PATIENT
  Age: 38 Year
  Sex: Female

DRUGS (7)
  1. ESTRADIOL VALERATE [Suspect]
     Active Substance: ESTRADIOL VALERATE
     Indication: In vitro fertilisation
     Dosage: 3 MILLIGRAM TWICE WEEK IN THE EVENING
     Route: 030
     Dates: start: 20230310, end: 20230310
  2. ESTRADIOL VALERATE [Suspect]
     Active Substance: ESTRADIOL VALERATE
     Dosage: 3 MILLIGRAM TWICE WEEKLY IN THE EVENING
     Route: 030
     Dates: start: 20230314, end: 20230314
  3. ESTRADIOL VALERATE [Suspect]
     Active Substance: ESTRADIOL VALERATE
     Dosage: 3 MILLIGRAM TWICE WEEKLY IN THE EVENING
     Route: 030
     Dates: start: 20230317, end: 20230317
  4. ESTRADIOL VALERATE [Suspect]
     Active Substance: ESTRADIOL VALERATE
     Dosage: 3 MILLIGRAM TWICE WEEKLY
     Route: 030
     Dates: start: 20230320, end: 20230320
  5. LEUPROLIDE ACETATE [Concomitant]
     Active Substance: LEUPROLIDE ACETATE
     Indication: Therapeutic ovarian suppression
     Dosage: 10 UNITS
     Route: 058
     Dates: start: 20230227, end: 20230323
  6. FOLIC ACID [Concomitant]
     Active Substance: FOLIC ACID
     Indication: Prophylaxis
     Dosage: UNK
     Route: 048
  7. SYNTHROID [Concomitant]
     Active Substance: LEVOTHYROXINE SODIUM
     Indication: Hypothyroidism
     Dosage: 50 MICROGRAM
     Route: 048

REACTIONS (4)
  - Oestradiol abnormal [Recovered/Resolved]
  - Drug ineffective for unapproved indication [Recovered/Resolved]
  - Product quality issue [Unknown]
  - Product use in unapproved indication [Unknown]

NARRATIVE: CASE EVENT DATE: 20230310
